FAERS Safety Report 8773461 (Version 2)
Quarter: 2012Q4

REPORT INFORMATION
  Report Type: 
  Country: AU (occurrence: AU)
  Receive Date: 20120907
  Receipt Date: 20121004
  Transmission Date: 20130627
  Serious: Yes (Hospitalization)
  Sender: FDA-Public Use
  Company Number: AU-ASTRAZENECA-2012SE65549

PATIENT
  Age: 16780 Day
  Sex: Female

DRUGS (4)
  1. PROPOFOL [Suspect]
     Route: 042
  2. FENTANYL [Suspect]
  3. MIDAZOLAM [Suspect]
  4. CEPHAZOLIN SODIUM [Suspect]

REACTIONS (7)
  - Stridor [Unknown]
  - Obstructive airways disorder [Unknown]
  - Hypopnoea [Unknown]
  - Rash erythematous [Unknown]
  - Wheezing [Unknown]
  - Face oedema [Unknown]
  - Anaphylactic reaction [Unknown]
